FAERS Safety Report 8612216-9 (Version None)
Quarter: 2012Q3

REPORT INFORMATION
  Report Type: 
  Country: None (occurrence: None)
  Receive Date: 20120822
  Receipt Date: 20120814
  Transmission Date: 20120928
  Serious: Yes (Disabling)
  Sender: FDA-Public Use
  Company Number: US-ROXANE LABORATORIES, INC.-2012-RO-01531RO

PATIENT
  Age: 74 Year
  Sex: Female

DRUGS (3)
  1. PREDNISONE TAB [Suspect]
     Indication: LUNG DISORDER
     Dosage: 40 MG
     Route: 048
     Dates: start: 20120601, end: 20120601
  2. FLOVENT [Concomitant]
     Indication: LUNG DISORDER
  3. PROAIR HFA [Concomitant]
     Indication: LUNG DISORDER

REACTIONS (2)
  - VISUAL ACUITY REDUCED [None]
  - BLINDNESS [None]
